FAERS Safety Report 4891994-9 (Version None)
Quarter: 2006Q1

REPORT INFORMATION
  Report Type: 
  Country: None (occurrence: None)
  Receive Date: 20060126
  Receipt Date: 20060116
  Transmission Date: 20060701
  Serious: Yes (Hospitalization, Other)
  Sender: FDA-Public Use
  Company Number: US-JNJFOC-20051005596

PATIENT
  Sex: Male
  Weight: 99.79 kg

DRUGS (10)
  1. REMICADE [Suspect]
     Route: 042
  2. REMICADE [Suspect]
     Route: 042
  3. REMICADE [Suspect]
     Indication: CROHN'S DISEASE
     Route: 042
  4. CEFOTAXIME [Suspect]
  5. PREDNISONE [Concomitant]
  6. PREDNISONE [Concomitant]
     Indication: CROHN'S DISEASE
  7. TIMOLOL MALEATE [Concomitant]
     Route: 047
  8. 6-MP [Concomitant]
     Indication: CROHN'S DISEASE
  9. ASPIRIN [Concomitant]
  10. TAGAMET [Concomitant]

REACTIONS (14)
  - ARTHRALGIA [None]
  - ASTHENIA [None]
  - CHEST PAIN [None]
  - FATIGUE [None]
  - HYPERSENSITIVITY [None]
  - MALAISE [None]
  - MYALGIA [None]
  - OEDEMA PERIPHERAL [None]
  - PHARYNGOLARYNGEAL PAIN [None]
  - PYREXIA [None]
  - RASH [None]
  - RASH MACULO-PAPULAR [None]
  - SERUM SICKNESS [None]
  - SWELLING FACE [None]
